FAERS Safety Report 8235565-5 (Version None)
Quarter: 2012Q1

REPORT INFORMATION
  Report Type: 
  Country: None (occurrence: None)
  Receive Date: 20120326
  Receipt Date: 20120314
  Transmission Date: 20120608
  Serious: Yes (Hospitalization)
  Sender: FDA-Public Use
  Company Number: BE-ELI_LILLY_AND_COMPANY-BE201203005102

PATIENT
  Age: 25 Year
  Sex: Male

DRUGS (2)
  1. ZYPREXA [Suspect]
     Dosage: 30 MG, QD
     Route: 048
  2. ZYPREXA [Suspect]
     Dosage: UNK, UNKNOWN
     Route: 048

REACTIONS (4)
  - INTENTIONAL SELF-INJURY [None]
  - OVERDOSE [None]
  - INTENTIONAL DRUG MISUSE [None]
  - PSYCHOTIC DISORDER [None]
